FAERS Safety Report 13213680 (Version 1)
Quarter: 2017Q1

REPORT INFORMATION
  Report Type: Report from Study
  Country: US (occurrence: US)
  Receive Date: 20170210
  Receipt Date: 20170210
  Transmission Date: 20170428
  Serious: Yes (Hospitalization, Other)
  Sender: FDA-Public Use
  Company Number: US-MYLANLABS-2017M1007724

PATIENT

DRUGS (4)
  1. ERLOTINIB [Suspect]
     Active Substance: ERLOTINIB
     Dosage: 100MG ONCE PER DAY ON DAYS 5-21 (28 DAY CYCLE)
     Route: 048
  2. ERLOTINIB [Suspect]
     Active Substance: ERLOTINIB
     Indication: BREAST CANCER METASTATIC
     Dosage: 150MG ONCE PER DAY ON DAYS 5-21 (28 DAY CYCLE)
     Route: 048
  3. BENDAMUSTINE [Suspect]
     Active Substance: BENDAMUSTINE
     Dosage: 120 MG/M2 OVER 30 MINUTES ON DAYS 1 AND 2 OF EACH CYCLE (28 DAY CYCLE)
     Route: 042
  4. BENDAMUSTINE [Suspect]
     Active Substance: BENDAMUSTINE
     Indication: BREAST CANCER METASTATIC
     Dosage: 100 MG/M2 OVER 30 MINUTES ON DAYS 1 AND 2 OF EACH CYCLE (28 DAY CYCLE)
     Route: 042

REACTIONS (4)
  - Lymphopenia [Unknown]
  - Dyspnoea [Unknown]
  - Infection [Unknown]
  - Fatigue [Unknown]
